FAERS Safety Report 17482252 (Version 4)
Quarter: 2020Q3

REPORT INFORMATION
  Report Type: Report from Study
  Country: US (occurrence: US)
  Receive Date: 20200302
  Receipt Date: 20200912
  Transmission Date: 20201102
  Serious: No
  Sender: FDA-Public Use
  Company Number: NVSC2020US058431

PATIENT
  Sex: Female

DRUGS (3)
  1. HYDROCHLOROTHIAZIDE. [Concomitant]
     Active Substance: HYDROCHLOROTHIAZIDE
     Indication: HYPERTENSION
     Dosage: UNK
     Route: 065
  2. COSENTYX [Suspect]
     Active Substance: SECUKINUMAB
     Indication: PSORIASIS
     Dosage: 300 MG, QMO
     Route: 058
  3. COSENTYX [Suspect]
     Active Substance: SECUKINUMAB
     Indication: PSORIATIC ARTHROPATHY
     Dosage: 300 MG, Q4W
     Route: 058

REACTIONS (22)
  - Parosmia [Unknown]
  - Abdominal discomfort [Unknown]
  - Pruritus [Unknown]
  - Skin atrophy [Unknown]
  - Skin discolouration [Unknown]
  - Skin exfoliation [Recovering/Resolving]
  - Blood glucose decreased [Unknown]
  - Abdominal pain [Unknown]
  - Influenza [Unknown]
  - Body temperature decreased [Unknown]
  - Feeling abnormal [Unknown]
  - Colitis [Unknown]
  - Blister [Recovering/Resolving]
  - Psoriasis [Unknown]
  - Illness [Unknown]
  - Pain [Unknown]
  - Musculoskeletal stiffness [Unknown]
  - Feeling cold [Unknown]
  - Paraesthesia [Unknown]
  - Anxiety [Unknown]
  - Nasopharyngitis [Unknown]
  - Drug ineffective [Unknown]
